FAERS Safety Report 6123684-9 (Version None)
Quarter: 2009Q1

REPORT INFORMATION
  Report Type: 
  Country: None (occurrence: None)
  Receive Date: 20090318
  Receipt Date: 20090318
  Transmission Date: 20090719
  Serious: Yes (Hospitalization)
  Sender: FDA-Public Use
  Company Number: None

PATIENT
  Age: 80 Year
  Sex: Male
  Weight: 47.37 kg

DRUGS (1)
  1. BACITRACIN [Suspect]
     Dosage: OTHER TOP
     Route: 061
     Dates: start: 20080916, end: 20080921

REACTIONS (1)
  - DERMATITIS CONTACT [None]
